FAERS Safety Report 7462810-6 (Version None)
Quarter: 2011Q2

REPORT INFORMATION
  Report Type: 
  Country: None (occurrence: None)
  Receive Date: 20110506
  Receipt Date: 20110421
  Transmission Date: 20111010
  Serious: Yes (Hospitalization, Other)
  Sender: FDA-Public Use
  Company Number: FR-JNJFOC-20110502837

PATIENT
  Age: 72 Year
  Sex: Female

DRUGS (8)
  1. BUMETANIDE [Suspect]
     Indication: ISCHAEMIC CARDIOMYOPATHY
     Route: 048
  2. IKOREL [Suspect]
     Indication: ISCHAEMIC CARDIOMYOPATHY
     Route: 048
  3. ASPIRIN [Suspect]
     Indication: ISCHAEMIC CARDIOMYOPATHY
     Route: 048
  4. ISOPTIN [Suspect]
     Indication: ISCHAEMIC CARDIOMYOPATHY
     Route: 048
  5. ACETAMINOPHEN AND TRAMADOL HCL [Suspect]
     Indication: RHEUMATOID ARTHRITIS
     Route: 048
  6. BISOPROLOL FUMARATE [Suspect]
     Indication: ISCHAEMIC CARDIOMYOPATHY
     Route: 048
  7. FLUINDIONE [Suspect]
     Indication: ARRHYTHMIA
     Route: 048
  8. FLUINDIONE [Suspect]
     Indication: ATRIAL FIBRILLATION
     Route: 048

REACTIONS (3)
  - EPISTAXIS [None]
  - CORONARY ARTERY STENOSIS [None]
  - ANGINA PECTORIS [None]
